FAERS Safety Report 8817113 (Version 1)
Quarter: 2012Q4

REPORT INFORMATION
  Report Type: Spontaneous
  Country: US (occurrence: None)
  Receive Date: 20121003
  Receipt Date: 20121003
  Transmission Date: 20130627
  Serious: Yes (Hospitalization)
  Sender: FDA-Public Use
  Company Number: None

PATIENT
  Age: 76 Year
  Sex: Male
  Weight: 65 kg

DRUGS (1)
  1. RIVAROXABAN [Suspect]
     Indication: DVT PROPHYLAXIS
     Dosage: 10mg daily po
     Route: 048
     Dates: start: 20120411, end: 20120412

REACTIONS (3)
  - Rectal haemorrhage [None]
  - Gastrointestinal haemorrhage [None]
  - Postoperative ileus [None]
